FAERS Safety Report 9918720 (Version 3)
Quarter: 2014Q1

REPORT INFORMATION
  Report Type: Spontaneous
  Country: PL (occurrence: PL)
  Receive Date: 20140224
  Receipt Date: 20140321
  Transmission Date: 20141002
  Serious: Yes (Hospitalization)
  Sender: FDA-Public Use
  Company Number: PL-ROCHE-1353206

PATIENT
  Age: 59 Year
  Sex: Male
  Weight: 73 kg

DRUGS (2)
  1. ZELBORAF [Suspect]
     Indication: MALIGNANT MELANOMA
     Route: 048
     Dates: start: 20131205, end: 20140207
  2. ZELBORAF [Suspect]
     Route: 048
     Dates: start: 20140221

REACTIONS (2)
  - Hepatotoxicity [Recovered/Resolved]
  - Eosinophilia [Recovered/Resolved]
